FAERS Safety Report 6446716-7 (Version None)
Quarter: 2009Q4

REPORT INFORMATION
  Report Type: 
  Country: None (occurrence: None)
  Receive Date: 20091119
  Receipt Date: 20091113
  Transmission Date: 20100525
  Serious: Yes (Other)
  Sender: FDA-Public Use
  Company Number: B0604874A

PATIENT
  Sex: Male

DRUGS (3)
  1. RELENZA [Suspect]
     Indication: INFLUENZA
     Dosage: 10MG TWICE PER DAY
     Route: 055
     Dates: start: 20091110, end: 20091111
  2. ASTOMIN [Concomitant]
     Dosage: 20MG THREE TIMES PER DAY
     Route: 048
  3. CALONAL [Concomitant]
     Route: 065

REACTIONS (4)
  - ABNORMAL BEHAVIOUR [None]
  - AGGRESSION [None]
  - NO THERAPEUTIC RESPONSE [None]
  - SOMNOLENCE [None]
